FAERS Safety Report 10951676 (Version 2)
Quarter: 2015Q2

REPORT INFORMATION
  Report Type: Spontaneous
  Country: US (occurrence: US)
  Receive Date: 20150324
  Receipt Date: 20150525
  Transmission Date: 20150821
  Serious: No
  Sender: FDA-Public Use
  Company Number: US-JNJFOC-20131106120

PATIENT
  Sex: Male
  Weight: 72.12 kg

DRUGS (7)
  1. MULTIVITAMINS [Concomitant]
     Active Substance: VITAMINS
     Route: 065
  2. LOSARTAN [Concomitant]
     Active Substance: LOSARTAN
     Route: 065
  3. ASPIRIN. [Concomitant]
     Active Substance: ASPIRIN
     Route: 065
  4. RISPERDAL CONSTA [Suspect]
     Active Substance: RISPERIDONE
     Indication: CATATONIA
     Route: 030
     Dates: start: 20131014
  5. RISPERDAL CONSTA [Suspect]
     Active Substance: RISPERIDONE
     Indication: CATATONIA
     Route: 030
     Dates: start: 20131028, end: 20131108
  6. CARVEDILOL. [Concomitant]
     Active Substance: CARVEDILOL
     Route: 065
  7. SIMVASTATIN. [Concomitant]
     Active Substance: SIMVASTATIN
     Route: 065

REACTIONS (5)
  - Depression [Recovered/Resolved]
  - Speech disorder [Recovered/Resolved]
  - Chest pain [Recovered/Resolved]
  - Social avoidant behaviour [Recovered/Resolved]
  - Drug ineffective [Recovered/Resolved]
